FAERS Safety Report 5840121-X (Version None)
Quarter: 2008Q3

REPORT INFORMATION
  Report Type: 
  Country: None (occurrence: None)
  Receive Date: 20080730
  Receipt Date: 20080416
  Transmission Date: 20090109
  Serious: No
  Sender: FDA-Public Use
  Company Number: PHEH2008US03835

PATIENT
  Sex: Female

DRUGS (3)
  1. TEKTURNA [Suspect]
     Indication: HYPERTENSION
     Dosage: 150 MG, QD,ORAL
     Route: 048
     Dates: start: 20071201
  2. DILANTIN [Concomitant]
  3. WARFARIN SODIUM [Concomitant]

REACTIONS (4)
  - ASTHENIA [None]
  - CONDITION AGGRAVATED [None]
  - HEARING IMPAIRED [None]
  - VISION BLURRED [None]
